FAERS Safety Report 5078707-5 (Version None)
Quarter: 2006Q3

REPORT INFORMATION
  Report Type: 
  Country: None (occurrence: None)
  Receive Date: 20060809
  Receipt Date: 20060809
  Transmission Date: 20061208
  Serious: No
  Sender: FDA-Public Use
  Company Number: None

PATIENT

DRUGS (2)
  1. DIPHENHYDRAMINE  50MG/ ML BAXTER HEALTHCARE CORP. [Suspect]
  2. HEPARIN SODIUM INJECTION 10,000 UNITS/ML BAXTER HEALTHCARE [Suspect]

REACTIONS (2)
  - INTERCEPTED DRUG DISPENSING ERROR [None]
  - MEDICATION ERROR [None]
